FAERS Safety Report 12354721 (Version 1)
Quarter: 2016Q2

REPORT INFORMATION
  Report Type: Spontaneous
  Country: BE (occurrence: BE)
  Receive Date: 20160511
  Receipt Date: 20160511
  Transmission Date: 20160815
  Serious: Yes (Other)
  Sender: FDA-Public Use
  Company Number: BE-ROXANE LABORATORIES, INC.-2016-RO-00823RO

PATIENT
  Age: 32 Year
  Sex: Female

DRUGS (1)
  1. FUROSEMIDE TABLETS USP, 20 MG [Suspect]
     Active Substance: FUROSEMIDE
     Indication: RENAL FUNCTION TEST
     Dosage: 80 MG
     Route: 048

REACTIONS (3)
  - Headache [Unknown]
  - Blood pressure decreased [Unknown]
  - Weight decreased [Unknown]
